FAERS Safety Report 23451302 (Version 19)
Quarter: 2025Q1

REPORT INFORMATION
  Report Type: Report from Study
  Country: JP (occurrence: JP)
  Receive Date: 20240129
  Receipt Date: 20250314
  Transmission Date: 20250409
  Serious: Yes (Other)
  Sender: PFIZER
  Company Number: JP-PFIZER INC-PV202400010330

PATIENT
  Age: 7 Year
  Sex: Male
  Weight: 27 kg

DRUGS (15)
  1. SIROLIMUS [Suspect]
     Active Substance: SIROLIMUS
     Indication: Lymphatic malformation
     Dosage: 1 MG,1 D
     Route: 048
     Dates: start: 20220406, end: 20220708
  2. SIROLIMUS [Suspect]
     Active Substance: SIROLIMUS
     Dosage: 1 MG,1 D
     Route: 048
     Dates: start: 20220810, end: 20221004
  3. SIROLIMUS [Suspect]
     Active Substance: SIROLIMUS
     Dosage: 1 MG,1 D
     Route: 048
     Dates: start: 20221109, end: 20221118
  4. SIROLIMUS [Suspect]
     Active Substance: SIROLIMUS
     Dosage: 1 MG,1 D
     Route: 048
     Dates: start: 20221125, end: 20230119
  5. SIROLIMUS [Suspect]
     Active Substance: SIROLIMUS
     Dosage: 1 MG,1 D
     Route: 048
     Dates: start: 20230127, end: 20230426
  6. SIROLIMUS [Suspect]
     Active Substance: SIROLIMUS
     Dosage: 1 MG,1 D
     Route: 048
     Dates: start: 20230510, end: 20230604
  7. SIROLIMUS [Suspect]
     Active Substance: SIROLIMUS
     Dosage: 1 MG,1 D
     Route: 048
     Dates: start: 20230612, end: 20231023
  8. SIROLIMUS [Suspect]
     Active Substance: SIROLIMUS
     Dosage: 1 MG,1 D
     Route: 048
     Dates: start: 20231026, end: 20231111
  9. SIROLIMUS [Suspect]
     Active Substance: SIROLIMUS
     Dosage: 1 MG,1 D
     Route: 048
     Dates: start: 20231113, end: 20231230
  10. SIROLIMUS [Suspect]
     Active Substance: SIROLIMUS
     Dosage: 1 MG,1 D
     Route: 048
     Dates: start: 20240108
  11. CEFDINIR [Suspect]
     Active Substance: CEFDINIR
     Route: 048
     Dates: start: 20221105, end: 20221108
  12. CEFDINIR [Suspect]
     Active Substance: CEFDINIR
     Route: 048
     Dates: start: 20230426, end: 20230502
  13. DEPRODONE PROPIONATE [Concomitant]
     Active Substance: DEPRODONE PROPIONATE
     Indication: Lymphatic malformation
     Route: 065
     Dates: start: 20221026
  14. KENACORT [Concomitant]
     Active Substance: TRIAMCINOLONE
     Indication: Lymphatic malformation
     Route: 065
     Dates: start: 20221026
  15. CALONAL [Concomitant]
     Active Substance: ACETAMINOPHEN
     Indication: Pain
     Route: 048
     Dates: start: 20230426, end: 20230502

REACTIONS (7)
  - Condition aggravated [Not Recovered/Not Resolved]
  - Infected neoplasm [Recovered/Resolved]
  - Tumour excision [Recovering/Resolving]
  - Pyrexia [Recovered/Resolved]
  - Streptococcal infection [Recovered/Resolved]
  - Upper respiratory tract inflammation [Recovered/Resolved]
  - Nasopharyngitis [Unknown]

NARRATIVE: CASE EVENT DATE: 20220622
